FAERS Safety Report 8302840-5 (Version None)
Quarter: 2012Q2

REPORT INFORMATION
  Report Type: 
  Country: None (occurrence: None)
  Receive Date: 20120420
  Receipt Date: 20120410
  Transmission Date: 20120825
  Serious: Yes (Other)
  Sender: FDA-Public Use
  Company Number: US-AMGEN-USASP2011006135

PATIENT
  Age: 14 Year
  Sex: Male
  Weight: 58.7 kg

DRUGS (12)
  1. ENBREL [Suspect]
     Indication: JUVENILE ARTHRITIS
     Dosage: 50 MG, QWK
     Route: 058
     Dates: start: 20091001, end: 20091101
  2. NAPROSYN [Concomitant]
     Dosage: 625 MG, BID
     Route: 048
  3. ZANTAC [Concomitant]
     Dosage: 150 MG, BID
     Route: 048
  4. ENBREL [Suspect]
     Indication: PSORIATIC ARTHROPATHY
     Dosage: 50 MG, 2 T/WK
     Route: 058
     Dates: start: 20090701, end: 20091001
  5. EMLA [Concomitant]
     Dosage: UNK
     Route: 061
  6. INDOCIN [Concomitant]
     Dosage: UNK
  7. ENBREL [Suspect]
     Indication: PSORIASIS
     Dosage: 50 MG, 2/WK
     Route: 058
     Dates: start: 20110101
  8. NAPROSYN [Concomitant]
     Dosage: 250 MG, BID
     Route: 048
     Dates: start: 20050101
  9. NAPROXEN [Concomitant]
     Dosage: 500 MG, BID
     Route: 048
  10. ENBREL [Suspect]
     Dosage: 50 MG, 2 /WK
     Route: 058
     Dates: start: 20091101, end: 20100101
  11. HUMIRA [Concomitant]
     Dosage: 40 MG, QWK
     Route: 058
     Dates: start: 20100201, end: 20110101
  12. HUMIRA [Concomitant]
     Dosage: 40 MG, Q2WK
     Route: 058
     Dates: start: 20100101, end: 20100201

REACTIONS (11)
  - JOINT SWELLING [None]
  - OEDEMA PERIPHERAL [None]
  - NECK PAIN [None]
  - ACNE [None]
  - INSOMNIA [None]
  - BACK PAIN [None]
  - LOCAL SWELLING [None]
  - JOINT EFFUSION [None]
  - PSORIATIC ARTHROPATHY [None]
  - PSORIASIS [None]
  - ARTHRALGIA [None]
